FAERS Safety Report 5581427-1 (Version None)
Quarter: 2007Q4

REPORT INFORMATION
  Report Type: 
  Country: None (occurrence: None)
  Receive Date: 20071231
  Receipt Date: 20071231
  Transmission Date: 20080405
  Serious: Yes (Other)
  Sender: FDA-Public Use
  Company Number: None

PATIENT
  Age: 40 Year
  Sex: Male
  Weight: 79.3795 kg

DRUGS (1)
  1. MALARONE [Suspect]
     Indication: MALARIA PROPHYLAXIS
     Dosage: 1 TABLET 1 PO
     Route: 048
     Dates: start: 20071214, end: 20071219

REACTIONS (3)
  - NAUSEA [None]
  - PANIC ATTACK [None]
  - VOMITING [None]
